FAERS Safety Report 4950548-6 (Version None)
Quarter: 2006Q1

REPORT INFORMATION
  Report Type: 
  Country: None (occurrence: None)
  Receive Date: 20060321
  Receipt Date: 20060321
  Transmission Date: 20060701
  Serious: Yes (Hospitalization)
  Sender: FDA-Public Use
  Company Number: None

PATIENT
  Age: 56 Year
  Sex: Male
  Weight: 75.7507 kg

DRUGS (4)
  1. CEFAZOLIN [Suspect]
     Dates: start: 20060222, end: 20060303
  2. CEFAZOLIN [Suspect]
  3. CEFAZOLIN [Suspect]
  4. CEFAZOLIN [Suspect]

REACTIONS (6)
  - NO THERAPEUTIC RESPONSE [None]
  - PHARMACEUTICAL PRODUCT COMPLAINT [None]
  - POOR QUALITY DRUG ADMINISTERED [None]
  - PYREXIA [None]
  - RASH GENERALISED [None]
  - WHITE BLOOD CELL COUNT INCREASED [None]
